FAERS Safety Report 6760045-3 (Version None)
Quarter: 2010Q2

REPORT INFORMATION
  Report Type: 
  Country: None (occurrence: None)
  Receive Date: 20100608
  Receipt Date: 20100528
  Transmission Date: 20101027
  Serious: Yes (Death, Life-Threatening, Hospitalization)
  Sender: FDA-Public Use
  Company Number: US-GENZYME-FABR-1001350

PATIENT

DRUGS (11)
  1. FABRAZYME [Suspect]
     Indication: FABRY'S DISEASE
     Dosage: 15 MG, Q2W
     Route: 042
     Dates: start: 20021220, end: 20100422
  2. PAROXETINE HCL [Concomitant]
     Indication: DEPRESSION
     Dosage: 40 MG, PRN
  3. DILTIAZEM [Concomitant]
     Indication: HYPERTENSION
     Dosage: 240 MG, UNK
  4. IRBESARTAN [Concomitant]
     Indication: HYPERTENSION
     Dosage: 150 MG, UNK
  5. MYCOPHENOLATE MOFETIL [Concomitant]
     Indication: RENAL TRANSPLANT
     Dosage: 750 MG, UNK
  6. PRAVASTATIN [Concomitant]
     Indication: PROPHYLAXIS
     Dosage: 40 MG, UNK
  7. CALCITRIOL [Concomitant]
     Indication: HYPERPARATHYROIDISM SECONDARY
     Dosage: 0.25 MG, UNK
  8. TACROLIMUS [Concomitant]
     Indication: RENAL TRANSPLANT
     Dosage: 3 MG, UNK
  9. TACROLIMUS [Concomitant]
     Dosage: 4 MG, UNK
  10. TEMAZEPAM [Concomitant]
     Indication: INSOMNIA
     Dosage: 10 MG, PRN
  11. ASPIRIN [Concomitant]
     Indication: PROPHYLAXIS
     Dosage: 100 MG, UNK

REACTIONS (1)
  - HEAD INJURY [None]
